FAERS Safety Report 5291944-X (Version None)
Quarter: 2007Q2

REPORT INFORMATION
  Report Type: 
  Country: None (occurrence: None)
  Receive Date: 20070403
  Receipt Date: 20070327
  Transmission Date: 20071010
  Serious: Yes (Other)
  Sender: FDA-Public Use
  Company Number: 2007EU000720

PATIENT
  Age: 15 Year
  Sex: Female

DRUGS (2)
  1. PROGRAF [Suspect]
     Indication: DERMATITIS ATOPIC
     Route: 061
     Dates: start: 20040430, end: 20040708
  2. PROGRAF [Suspect]
     Indication: DERMATITIS ATOPIC
     Route: 061
     Dates: start: 20040101

REACTIONS (4)
  - APPLICATION SITE RASH [None]
  - LYMPHADENOPATHY [None]
  - PYREXIA [None]
  - STAPHYLOCOCCAL IMPETIGO [None]
